FAERS Safety Report 13371952 (Version 1)
Quarter: 2017Q1

REPORT INFORMATION
  Report Type: Spontaneous
  Country: US (occurrence: US)
  Receive Date: 20170326
  Receipt Date: 20170326
  Transmission Date: 20170429
  Serious: Yes (Other)
  Sender: FDA-Public Use
  Company Number: US-TEVA-751955USA

PATIENT
  Age: 60 Year
  Sex: Female

DRUGS (7)
  1. TRAMADOL. [Concomitant]
     Active Substance: TRAMADOL
  2. BACLOFEN. [Concomitant]
     Active Substance: BACLOFEN
  3. NEURONTIN [Concomitant]
     Active Substance: GABAPENTIN
  4. NALTREXONE [Concomitant]
     Active Substance: NALTREXONE
  5. COPAXONE [Suspect]
     Active Substance: GLATIRAMER ACETATE
     Indication: MULTIPLE SCLEROSIS
     Route: 058
  6. ADVIL [Concomitant]
     Active Substance: IBUPROFEN
  7. LASIX [Concomitant]
     Active Substance: FUROSEMIDE

REACTIONS (3)
  - Influenza [Unknown]
  - Multiple sclerosis relapse [Unknown]
  - Drug dose omission [Unknown]

NARRATIVE: CASE EVENT DATE: 201703
